FAERS Safety Report 23136146 (Version 2)
Quarter: 2023Q4

REPORT INFORMATION
  Report Type: Report from Study
  Country: EG (occurrence: EG)
  Receive Date: 20231102
  Receipt Date: 20231215
  Transmission Date: 20240109
  Serious: Yes (Other)
  Sender: FDA-Public Use
  Company Number: EG-002147023-NVSC2023EG231491

PATIENT
  Age: 22 Year
  Sex: Male

DRUGS (6)
  1. LEQVIO [Suspect]
     Active Substance: INCLISIRAN SODIUM
     Indication: Hypercholesterolaemia
     Dosage: (ONE DOSE INITIALLY, SECOND DOSE AFTER 3 MONTHS AND THEN TO BE EVERY 6 MONTHS)
     Route: 058
     Dates: start: 20230715
  2. LEQVIO [Suspect]
     Active Substance: INCLISIRAN SODIUM
     Dosage: UNK
     Route: 058
     Dates: start: 20231015
  3. CARE DIPINE [Concomitant]
     Indication: Hypercholesterolaemia
     Dosage: BID
     Route: 048
     Dates: start: 202301
  4. NEBIVOLOL HYDROCHLORIDE [Concomitant]
     Active Substance: NEBIVOLOL HYDROCHLORIDE
     Indication: Hypertension
     Dosage: BID (STARTED 7-5 YEARS AGO)
     Route: 048
     Dates: end: 202303
  5. MAVILOR [Concomitant]
     Indication: Hypertension
     Dosage: BID (1-2 MONTHS)
     Route: 048
  6. ASPIRIN [Concomitant]
     Active Substance: ASPIRIN
     Indication: Anticoagulant therapy
     Dosage: 2 DOSAGE FORM, QD (STARTED 10 OR 15 OR 20 YEARS AGO)
     Route: 048

REACTIONS (3)
  - Low density lipoprotein increased [Unknown]
  - Hypertension [Recovering/Resolving]
  - Drug ineffective [Unknown]

NARRATIVE: CASE EVENT DATE: 20231021
